FAERS Safety Report 5389777-9 (Version None)
Quarter: 2007Q3

REPORT INFORMATION
  Report Type: 
  Country: None (occurrence: None)
  Receive Date: 20070717
  Receipt Date: 20070709
  Transmission Date: 20080115
  Serious: Yes (Hospitalization)
  Sender: FDA-Public Use
  Company Number: JP-MERCK-0706USA01492

PATIENT
  Age: 84 Year
  Sex: Female

DRUGS (8)
  1. PEPCID RPD [Suspect]
     Route: 048
  2. AMLODIN [Concomitant]
     Indication: HYPERTENSION
     Route: 048
  3. VESICARE [Suspect]
     Indication: HYPERTONIC BLADDER
     Route: 048
     Dates: end: 20070515
  4. LIPITOR [Concomitant]
     Indication: HYPERLIPIDAEMIA
     Route: 048
  5. ASPIRIN [Concomitant]
     Indication: CEREBRAL INFARCTION
     Route: 048
  6. BLOPRESS [Concomitant]
     Indication: HYPERTENSION
     Route: 048
  7. LASIX [Concomitant]
     Indication: CEREBRAL INFARCTION
     Route: 048
  8. ALFAROL [Concomitant]
     Route: 048

REACTIONS (2)
  - PYREXIA [None]
  - URINARY RETENTION [None]
